FAERS Safety Report 23012260 (Version 3)
Quarter: 2024Q1

REPORT INFORMATION
  Report Type: Spontaneous
  Country: CA (occurrence: CA)
  Receive Date: 20230930
  Receipt Date: 20240118
  Transmission Date: 20240410
  Serious: Yes (Hospitalization)
  Sender: FDA-Public Use
  Company Number: CA-AUROBINDO-AUR-APL-2023-060466

PATIENT
  Sex: Female

DRUGS (22)
  1. ARIPIPRAZOLE [Suspect]
     Active Substance: ARIPIPRAZOLE
     Indication: Schizophrenia
     Dosage: 400 MILLIGRAM, 1 EVERY 3 WEEKS
     Route: 065
  2. ARIPIPRAZOLE [Suspect]
     Active Substance: ARIPIPRAZOLE
     Dosage: 25 MILLIGRAM, ONCE A DAY
     Route: 048
  3. OLANZAPINE [Suspect]
     Active Substance: OLANZAPINE
     Indication: Schizophrenia
     Dosage: 10 MILLIGRAM, ONCE A DAY
     Route: 048
  4. OLANZAPINE [Suspect]
     Active Substance: OLANZAPINE
     Dosage: 2.5 MILLIGRAM, ONCE A DAY
     Route: 048
  5. QUETIAPINE [Suspect]
     Active Substance: QUETIAPINE
     Indication: Schizoaffective disorder
     Dosage: 500 MILLIGRAM, DAILY
     Route: 048
  6. QUETIAPINE [Suspect]
     Active Substance: QUETIAPINE
     Indication: Personality disorder
     Dosage: UNK
     Route: 065
  7. DIVALPROEX SODIUM [Suspect]
     Active Substance: DIVALPROEX SODIUM
     Indication: Schizoaffective disorder
     Dosage: 1500 MILLIGRAM, DAILY
     Route: 065
  8. DIVALPROEX SODIUM [Suspect]
     Active Substance: DIVALPROEX SODIUM
     Indication: Personality disorder
  9. LITHIUM [Suspect]
     Active Substance: LITHIUM
     Indication: Schizoaffective disorder
     Dosage: UNK
     Route: 065
  10. LITHIUM [Suspect]
     Active Substance: LITHIUM
     Indication: Personality disorder
     Dosage: 1200 MILLIGRAM, DAILY
     Route: 065
  11. LOXAPINE [Suspect]
     Active Substance: LOXAPINE
     Indication: Schizoaffective disorder
     Dosage: UNK
     Route: 065
  12. LOXAPINE [Suspect]
     Active Substance: LOXAPINE
     Indication: Personality disorder
     Dosage: 25 MILLIGRAM, DAILY
     Route: 065
  13. OXCARBAZEPINE [Suspect]
     Active Substance: OXCARBAZEPINE
     Indication: Schizoaffective disorder
     Dosage: UNK
     Route: 065
  14. OXCARBAZEPINE [Suspect]
     Active Substance: OXCARBAZEPINE
     Indication: Personality disorder
     Dosage: 600 MILLIGRAM, DAILY
     Route: 065
  15. PALIPERIDONE [Suspect]
     Active Substance: PALIPERIDONE
     Indication: Schizoaffective disorder
     Dosage: UNK
     Route: 065
  16. PALIPERIDONE [Suspect]
     Active Substance: PALIPERIDONE
     Indication: Personality disorder
     Dosage: 150 MILLIGRAM 1 EVERY 2 WEEKS
     Route: 030
  17. RISPERIDONE [Suspect]
     Active Substance: RISPERIDONE
     Indication: Schizophrenia
     Dosage: 3 MILLIGRAM, ONCE A DAY
     Route: 048
  18. ZUCLOPENTHIXOL [Suspect]
     Active Substance: ZUCLOPENTHIXOL
     Indication: Schizoaffective disorder
     Dosage: UNK
     Route: 065
  19. ZUCLOPENTHIXOL [Suspect]
     Active Substance: ZUCLOPENTHIXOL
     Indication: Personality disorder
  20. ZUCLOPENTHIXOL [Suspect]
     Active Substance: ZUCLOPENTHIXOL
     Indication: Schizoaffective disorder
     Dosage: 150 MILLIGRAM 1 EVERY 2 WEEKS
     Route: 030
  21. ZUCLOPENTHIXOL [Suspect]
     Active Substance: ZUCLOPENTHIXOL
     Indication: Personality disorder
     Dosage: 200 MILLIGRAM, 1 EVERY 3 WEEKS
     Route: 065
  22. ZUCLOPENTHIXOL [Suspect]
     Active Substance: ZUCLOPENTHIXOL
     Indication: Schizophrenia

REACTIONS (2)
  - Extrapyramidal disorder [Unknown]
  - Drug ineffective [Unknown]
